FAERS Safety Report 5728902-4 (Version None)
Quarter: 2008Q2

REPORT INFORMATION
  Report Type: 
  Country: None (occurrence: None)
  Receive Date: 20080430
  Receipt Date: 20080121
  Transmission Date: 20081010
  Serious: No
  Sender: FDA-Public Use
  Company Number: 2008PV033993

PATIENT
  Age: 59 Year
  Sex: Female

DRUGS (4)
  1. SYMLIN [Suspect]
     Indication: TYPE 1 DIABETES MELLITUS
     Dosage: 7.5 MCG;SC
     Route: 058
  2. SYMLIN [Suspect]
     Dosage: 45 MCG;SC ; 30 MCG;SC ; 15 MCG;SC
     Route: 058
     Dates: start: 20050101
  3. HUMALOG [Concomitant]
  4. LANTUS [Concomitant]

REACTIONS (2)
  - DRUG PRESCRIBING ERROR [None]
  - NAUSEA [None]
